FAERS Safety Report 8396659-7 (Version None)
Quarter: 2012Q1

REPORT INFORMATION
  Report Type: 
  Country: None (occurrence: None)
  Receive Date: 20120323
  Receipt Date: 20110510
  Transmission Date: 20120608
  Serious: Yes (Hospitalization, Other)
  Sender: FDA-Public Use
  Company Number: 163-21880-11042200

PATIENT
  Age: 76 Year
  Sex: Female
  Weight: 68.9 kg

DRUGS (4)
  1. REVLIMID [Suspect]
     Indication: MULTIPLE MYELOMA
     Dosage: 10 MG, 1 IN 1 D, PO
     Route: 048
     Dates: start: 20101101
  2. ASPIRIN [Concomitant]
  3. REVLIMID [Suspect]
  4. REVLIMID [Suspect]

REACTIONS (7)
  - ARTHRITIS INFECTIVE [None]
  - EAR INFECTION [None]
  - BLOOD IMMUNOGLOBULIN G INCREASED [None]
  - DYSPNOEA [None]
  - GINGIVAL INFECTION [None]
  - THROMBOSIS [None]
  - PULMONARY OEDEMA [None]
